FAERS Safety Report 25483031 (Version 1)
Quarter: 2025Q2

REPORT INFORMATION
  Report Type: Spontaneous
  Country: TW (occurrence: TW)
  Receive Date: 20250626
  Receipt Date: 20250626
  Transmission Date: 20250716
  Serious: Yes (Death, Hospitalization)
  Sender: TAKEDA
  Company Number: TW-MMM-Otsuka-RHVQ1368

PATIENT
  Age: 56 Year
  Sex: Male
  Weight: 71.5 kg

DRUGS (8)
  1. ICLUSIG [Suspect]
     Active Substance: PONATINIB HYDROCHLORIDE
     Indication: Acute lymphocytic leukaemia
     Dosage: 30 MILLIGRAM, QD
  2. ICLUSIG [Suspect]
     Active Substance: PONATINIB HYDROCHLORIDE
     Dosage: 15 MILLIGRAM, QOD
  3. ICLUSIG [Suspect]
     Active Substance: PONATINIB HYDROCHLORIDE
     Dosage: 5 MILLIGRAM, QOD
  4. ICLUSIG [Suspect]
     Active Substance: PONATINIB HYDROCHLORIDE
     Dosage: 15 MILLIGRAM, QD
  5. ICLUSIG [Suspect]
     Active Substance: PONATINIB HYDROCHLORIDE
  6. ICLUSIG [Suspect]
     Active Substance: PONATINIB HYDROCHLORIDE
  7. NILOTINIB [Suspect]
     Active Substance: NILOTINIB
     Indication: Acute lymphocytic leukaemia
  8. NILOTINIB [Suspect]
     Active Substance: NILOTINIB

REACTIONS (2)
  - Fungal infection [Fatal]
  - Dermatitis exfoliative generalised [Unknown]

NARRATIVE: CASE EVENT DATE: 20181213
